FAERS Safety Report 24361534 (Version 1)
Quarter: 2024Q3

REPORT INFORMATION
  Report Type: Spontaneous
  Country: US (occurrence: US)
  Receive Date: 20240925
  Receipt Date: 20240925
  Transmission Date: 20241017
  Serious: Yes (Hospitalization, Other)
  Sender: PROCTER AND GAMBLE
  Company Number: US-PROCTER_AND_GAMBLE-PH24007409

PATIENT
  Age: 8 Year

DRUGS (5)
  1. DIPHENHYDRAMINE HYDROCHLORIDE [Suspect]
     Active Substance: DIPHENHYDRAMINE HYDROCHLORIDE
     Dosage: UNK
  2. FENTANYL [Suspect]
     Active Substance: FENTANYL\FENTANYL CITRATE
  3. COCAINE [Suspect]
     Active Substance: COCAINE
     Dosage: COCAINE METABOLITES
  4. NORFENTANYL [Suspect]
     Active Substance: NORFENTANYL
  5. CAFFEINE [Suspect]
     Active Substance: CAFFEINE

REACTIONS (45)
  - Toxic leukoencephalopathy [Recovered/Resolved]
  - Depressed level of consciousness [Recovered/Resolved]
  - Agonal respiration [Recovered/Resolved]
  - Acute respiratory failure [Recovered/Resolved]
  - Hypoxia [Recovered/Resolved]
  - Respiratory depression [Recovered/Resolved]
  - Mental status changes [Recovered/Resolved]
  - Bradypnoea [Recovered/Resolved]
  - Miosis [Recovered/Resolved]
  - Neurological decompensation [Recovered/Resolved]
  - Somnolence [Recovered/Resolved]
  - Tachycardia [Recovered/Resolved]
  - Confusional state [Recovered/Resolved]
  - Electrocardiogram QT prolonged [Recovered/Resolved]
  - Electrocardiogram T wave inversion [Recovered/Resolved]
  - Hypoperfusion [Recovered/Resolved]
  - Toxicity to various agents [Recovered/Resolved]
  - Arthralgia [Recovered/Resolved]
  - Pain in extremity [Recovered/Resolved]
  - Hypoaesthesia [Recovered/Resolved]
  - Gait disturbance [Recovered/Resolved]
  - Ataxia [Recovered/Resolved]
  - Asthenia [Recovered/Resolved]
  - Vision blurred [Recovered/Resolved]
  - Cerebellar density decreased [Recovered/Resolved]
  - Respiratory acidosis [Recovered/Resolved]
  - Metabolic acidosis [Recovered/Resolved]
  - Hyperreflexia [Unknown]
  - Blood creatinine increased [Recovered/Resolved]
  - Aspartate aminotransferase increased [Recovering/Resolving]
  - Alanine aminotransferase increased [Recovering/Resolving]
  - Blood lactic acid increased [Recovered/Resolved]
  - Troponin I increased [Recovering/Resolving]
  - White blood cell count increased [Recovering/Resolving]
  - Blood glucose increased [Recovering/Resolving]
  - Sinus tachycardia [Recovered/Resolved]
  - Bundle branch block right [Recovered/Resolved]
  - PCO2 increased [Recovered/Resolved]
  - Blood pH decreased [Recovered/Resolved]
  - Protein S decreased [Unknown]
  - Protein C decreased [Unknown]
  - Magnetic resonance imaging abnormal [Unknown]
  - Haemoglobin decreased [Recovered/Resolved]
  - Blood bicarbonate decreased [Recovered/Resolved]
  - Blood calcium decreased [Recovered/Resolved]
